FAERS Safety Report 6580726-4 (Version None)
Quarter: 2010Q1

REPORT INFORMATION
  Report Type: 
  Country: None (occurrence: None)
  Receive Date: 20100212
  Receipt Date: 20100201
  Transmission Date: 20100710
  Serious: Yes (Death, Hospitalization, Other)
  Sender: FDA-Public Use
  Company Number: GB-JNJFOC-20090906213

PATIENT
  Age: 61 Year
  Sex: Female

DRUGS (10)
  1. REOPRO [Suspect]
     Indication: ANGINA PECTORIS
  2. ASPIRIN [Interacting]
     Indication: ANGINA PECTORIS
  3. BIVALIRUDIN [Interacting]
     Indication: ANGINA PECTORIS
     Route: 042
     Dates: start: 20090410, end: 20090410
  4. BIVALIRUDIN [Interacting]
     Route: 042
     Dates: start: 20090410, end: 20090410
  5. CLOPIDOGREL [Interacting]
     Indication: ANGINA PECTORIS
     Route: 042
  6. CLOPIDOGREL [Interacting]
     Route: 042
  7. CLOPIDOGREL [Interacting]
     Indication: ANGIOPLASTY
     Route: 042
  8. CLOPIDOGREL [Interacting]
     Route: 042
  9. HEPARIN SODIUM [Interacting]
     Indication: ANGIOPLASTY
     Dosage: 3000 DF
  10. BETA BLOCKERS, NOS [Concomitant]
     Indication: DRUG USE FOR UNKNOWN INDICATION

REACTIONS (6)
  - CORONARY ARTERY THROMBOSIS [None]
  - DRUG INEFFECTIVE [None]
  - DRUG INTERACTION [None]
  - OVERDOSE [None]
  - PUNCTURE SITE HAEMORRHAGE [None]
  - SUBDURAL HAEMORRHAGE [None]
